FAERS Safety Report 25691888 (Version 1)
Quarter: 2025Q3

REPORT INFORMATION
  Report Type: Spontaneous
  Country: GB (occurrence: GB)
  Receive Date: 20250818
  Receipt Date: 20250818
  Transmission Date: 20251020
  Serious: Yes (Life-Threatening, Hospitalization, Other)
  Sender: PFIZER
  Company Number: GB-PFIZER INC-PV202500098642

PATIENT
  Age: 13 Year
  Sex: Female

DRUGS (11)
  1. METHYLPREDNISOLONE SODIUM SUCCINATE [Suspect]
     Active Substance: METHYLPREDNISOLONE SODIUM SUCCINATE
     Indication: Myasthenia gravis
     Route: 042
     Dates: start: 19910924, end: 19911025
  2. PREDNISOLONE [Suspect]
     Active Substance: PREDNISOLONE
     Indication: Myasthenia gravis
     Dosage: 45 MG, DAILY
     Route: 048
     Dates: start: 199109
  3. PREDNISOLONE [Suspect]
     Active Substance: PREDNISOLONE
     Dosage: 50 MG, DAILY
     Route: 048
  4. PREDNISOLONE [Suspect]
     Active Substance: PREDNISOLONE
     Dosage: 80 MG, ALTERNATE DAY
     Dates: start: 19911213
  5. AZATHIOPRINE [Concomitant]
     Active Substance: AZATHIOPRINE
     Dosage: 75 MG, DAILY
  6. IMMUNE GLOBULIN NOS [Concomitant]
     Active Substance: IMMUNE GLOBULIN NOS
     Dosage: 23 G, DAILY
     Route: 042
  7. CEFTAZIDIME [Concomitant]
     Active Substance: CEFTAZIDIME
  8. CLINDAMYCIN [Concomitant]
     Active Substance: CLINDAMYCIN
  9. NETILMICIN [Concomitant]
     Active Substance: NETILMICIN
  10. CEFTRIAXONE [Concomitant]
     Active Substance: CEFTRIAXONE
  11. VANCOMYCIN [Concomitant]
     Active Substance: VANCOMYCIN

REACTIONS (4)
  - Myopathy [Recovered/Resolved]
  - Paralysis [Recovered/Resolved]
  - Muscle atrophy [Recovered/Resolved]
  - Off label use [Unknown]
